FAERS Safety Report 14855474 (Version 1)
Quarter: 2018Q2

REPORT INFORMATION
  Report Type: Spontaneous
  Country: US (occurrence: US)
  Receive Date: 20180507
  Receipt Date: 20180507
  Transmission Date: 20180711
  Serious: No
  Sender: FDA-Public Use
  Company Number: US-ROCHE-1976720

PATIENT
  Sex: Male

DRUGS (5)
  1. ELIQUIS [Concomitant]
     Active Substance: APIXABAN
  2. LIPITOR [Concomitant]
     Active Substance: ATORVASTATIN CALCIUM
  3. ESBRIET [Suspect]
     Active Substance: PIRFENIDONE
     Indication: IDIOPATHIC PULMONARY FIBROSIS
     Route: 048
     Dates: start: 20161102
  4. DILTIAZEM CD [Concomitant]
     Active Substance: DILTIAZEM
  5. FLOMAX [Concomitant]
     Active Substance: TAMSULOSIN HYDROCHLORIDE

REACTIONS (4)
  - Diarrhoea [Unknown]
  - Abdominal discomfort [Not Recovered/Not Resolved]
  - Treatment noncompliance [Unknown]
  - Asthenia [Unknown]
